FAERS Safety Report 18751239 (Version 1)
Quarter: 2021Q1

REPORT INFORMATION
  Report Type: Spontaneous
  Country: ID (occurrence: ID)
  Receive Date: 20210118
  Receipt Date: 20210118
  Transmission Date: 20210419
  Serious: Yes (Hospitalization, Other)
  Sender: FDA-Public Use
  Company Number: ID-LUPIN PHARMACEUTICALS INC.-2021-00083

PATIENT
  Age: 23 Year
  Sex: Female

DRUGS (1)
  1. METHYLPREDNISOLONE. [Suspect]
     Active Substance: METHYLPREDNISOLONE
     Indication: SYSTEMIC LUPUS ERYTHEMATOSUS
     Dosage: 4 MILLIGRAM, BID,EVERY 2DAYS
     Route: 048

REACTIONS (1)
  - Osteonecrosis [Unknown]
